FAERS Safety Report 10440970 (Version 2)
Quarter: 2014Q3

REPORT INFORMATION
  Report Type: Spontaneous
  Country: PH (occurrence: PH)
  Receive Date: 20140909
  Receipt Date: 20140909
  Transmission Date: 20150326
  Serious: Yes (Hospitalization)
  Sender: FDA-Public Use
  Company Number: PH-NOVOPROD-416291

PATIENT
  Age: 64 Year
  Sex: Male
  Weight: 205 kg

DRUGS (2)
  1. NOVOMIX 30 FLEXPEN [Suspect]
     Active Substance: INSULIN ASPART
     Indication: TYPE 2 DIABETES MELLITUS
     Dosage: 95 U, QD (45-0-40)
     Route: 058
  2. VICTOZA [Concomitant]
     Active Substance: LIRAGLUTIDE
     Dosage: UNK

REACTIONS (5)
  - Product contamination with body fluid [Unknown]
  - Injection site haemorrhage [Unknown]
  - Hospitalisation [Unknown]
  - Device failure [Unknown]
  - Wrong technique in drug usage process [Unknown]
